FAERS Safety Report 18284983 (Version 2)
Quarter: 2022Q1

REPORT INFORMATION
  Report Type: Report from Study
  Country: JP (occurrence: JP)
  Receive Date: 20200918
  Receipt Date: 20220201
  Transmission Date: 20220424
  Serious: Yes (Hospitalization)
  Sender: FDA-Public Use
  Company Number: JP-ACTELION-A-CH2020-208650

PATIENT
  Age: 75 Year
  Sex: Male
  Weight: 57 kg

DRUGS (17)
  1. UPTRAVI [Suspect]
     Active Substance: SELEXIPAG
     Indication: Pulmonary arterial hypertension
     Dosage: 0.2 MG, BID
     Route: 048
     Dates: start: 20170425, end: 20170508
  2. UPTRAVI [Suspect]
     Active Substance: SELEXIPAG
     Dosage: 0.4 MG, BID
     Route: 048
     Dates: start: 20170509, end: 20171218
  3. UPTRAVI [Suspect]
     Active Substance: SELEXIPAG
     Dosage: 0.4 MG, TID
     Route: 048
     Dates: start: 20171219, end: 20190729
  4. UPTRAVI [Suspect]
     Active Substance: SELEXIPAG
     Dosage: 1.6 MG, QD
     Route: 048
     Dates: start: 20190730, end: 20200401
  5. UPTRAVI [Suspect]
     Active Substance: SELEXIPAG
     Route: 048
     Dates: start: 20200402
  6. UPTRAVI [Suspect]
     Active Substance: SELEXIPAG
     Route: 048
     Dates: start: 20220106
  7. UPTRAVI [Suspect]
     Active Substance: SELEXIPAG
     Route: 048
  8. ADCIRCA [Concomitant]
     Active Substance: TADALAFIL
     Indication: Pulmonary arterial hypertension
     Dosage: 40 MG, QD
     Dates: start: 20150902
  9. ASPIRIN [Concomitant]
     Active Substance: ASPIRIN
     Indication: Systemic scleroderma
     Dates: start: 20121129
  10. CLARITIN [Concomitant]
     Active Substance: LORATADINE
     Indication: Rhinitis perennial
     Dates: start: 20110114
  11. URSO [Concomitant]
     Active Substance: URSODIOL
     Dates: start: 20140814
  12. EVOXAC [Concomitant]
     Active Substance: CEVIMELINE HYDROCHLORIDE
     Indication: Dry skin
     Route: 048
     Dates: start: 20180111
  13. BETAMETHASONE DIPROPIONATE [Concomitant]
     Active Substance: BETAMETHASONE DIPROPIONATE
     Indication: Systemic scleroderma
     Dates: start: 20190117
  14. FERROUS SULFATE [Concomitant]
     Active Substance: FERROUS SULFATE
     Indication: Anaemia
     Dates: start: 20190322, end: 20190826
  15. BERAPROST SODIUM [Concomitant]
     Active Substance: BERAPROST SODIUM
  16. SILDENAFIL CITRATE [Concomitant]
     Active Substance: SILDENAFIL CITRATE
     Dates: start: 2015
  17. SILDENAFIL CITRATE [Concomitant]
     Active Substance: SILDENAFIL CITRATE
     Dates: start: 2016

REACTIONS (4)
  - Immune thrombocytopenia [Recovered/Resolved]
  - Walking distance test abnormal [Not Recovered/Not Resolved]
  - Dyspnoea exertional [Not Recovered/Not Resolved]
  - Respiratory disorder [Not Recovered/Not Resolved]

NARRATIVE: CASE EVENT DATE: 20200813
